FAERS Safety Report 16358517 (Version 1)
Quarter: 2019Q2

REPORT INFORMATION
  Report Type: Spontaneous
  Country: US (occurrence: US)
  Receive Date: 20190527
  Receipt Date: 20190527
  Transmission Date: 20190711
  Serious: Yes (Other)
  Sender: FDA-Public Use
  Company Number: US-TEVA-2019-US-1056056

PATIENT
  Age: 78 Year
  Sex: Female

DRUGS (4)
  1. RISEDRONATE SODIUM - BP [Suspect]
     Active Substance: RISEDRONATE SODIUM
     Indication: OSTEOPOROSIS
     Dosage: 150 MILLIGRAM DAILY;
     Route: 065
     Dates: start: 201001, end: 201110
  2. ALENDRONATE [Suspect]
     Active Substance: ALENDRONATE SODIUM
     Indication: OSTEOPOROSIS
     Route: 065
  3. FOSAMAX [Suspect]
     Active Substance: ALENDRONATE SODIUM
     Indication: OSTEOPOROSIS
     Dosage: 70 MILLIGRAM DAILY;
     Route: 048
     Dates: start: 200401, end: 2007
  4. IBANDRONIC [Suspect]
     Active Substance: IBANDRONIC ACID
     Indication: OSTEOPOROSIS
     Dosage: 150 MILLIGRAM DAILY;
     Route: 048
     Dates: start: 200706, end: 200906

REACTIONS (3)
  - Depression [Unknown]
  - Osteonecrosis of jaw [Unknown]
  - Anxiety [Unknown]

NARRATIVE: CASE EVENT DATE: 201110
